FAERS Safety Report 6181051-6 (Version None)
Quarter: 2009Q2

REPORT INFORMATION
  Report Type: 
  Country: None (occurrence: None)
  Receive Date: 20090504
  Receipt Date: 20090422
  Transmission Date: 20091009
  Serious: Yes (Hospitalization)
  Sender: FDA-Public Use
  Company Number: 2009SP008709

PATIENT
  Age: 11 Month
  Sex: Male

DRUGS (3)
  1. BETAMETHASONE SODIUM PHOSPHATE [Suspect]
     Dosage: PO
     Route: 048
  2. DEXTROMETHORPHAN HYDROBROMIDE (DEXTROMETHORPHAN HYDROBROMIDE) [Suspect]
     Dosage: PO
     Route: 048
  3. FLOMOX (CEFCAPENE PIVOXIL HYDROCHLORIDE) [Suspect]
     Dosage: PO
     Route: 048

REACTIONS (3)
  - LIVER DISORDER [None]
  - PYREXIA [None]
  - RASH [None]
